FAERS Safety Report 7893034-6 (Version None)
Quarter: 2011Q4

REPORT INFORMATION
  Report Type: 
  Country: None (occurrence: None)
  Receive Date: 20111104
  Receipt Date: 20111024
  Transmission Date: 20120403
  Serious: Yes (Hospitalization)
  Sender: FDA-Public Use
  Company Number: US-BRISTOL-MYERS SQUIBB COMPANY-16189839

PATIENT
  Age: 15 Year
  Sex: Male

DRUGS (3)
  1. GENTAMICIN [Suspect]
     Route: 042
  2. CEFEPIME [Suspect]
     Route: 042
  3. COTRIM [Concomitant]

REACTIONS (2)
  - ENCEPHALOPATHY [None]
  - RENAL FAILURE ACUTE [None]
